FAERS Safety Report 25584355 (Version 1)
Quarter: 2025Q3

REPORT INFORMATION
  Report Type: Spontaneous
  Country: US (occurrence: US)
  Receive Date: 20250721
  Receipt Date: 20250721
  Transmission Date: 20251020
  Serious: No
  Sender: Haleon PLC
  Company Number: US-HALEON-2253093

PATIENT
  Age: 25 Year
  Sex: Male

DRUGS (2)
  1. NICORETTE SPEARMINT BURST [Suspect]
     Active Substance: NICOTINE
     Indication: Smoking cessation therapy
  2. NICORETTE [Suspect]
     Active Substance: NICOTINE
     Indication: Smoking cessation therapy

REACTIONS (4)
  - Product use issue [Unknown]
  - Product physical consistency issue [Unknown]
  - Product physical issue [Unknown]
  - Product taste abnormal [Unknown]
